FAERS Safety Report 4673431-2 (Version None)
Quarter: 2005Q2

REPORT INFORMATION
  Report Type: 
  Country: None (occurrence: None)
  Receive Date: 20050525
  Receipt Date: 20050523
  Transmission Date: 20051028
  Serious: Yes (Life-Threatening)
  Sender: FDA-Public Use
  Company Number: D01200502599

PATIENT
  Age: 59 Year

DRUGS (7)
  1. FONDAPARINUX SODIUM [Suspect]
     Route: 058
     Dates: start: 20050405, end: 20050405
  2. ASPIRIN [Concomitant]
  3. CLOPIDOGREL BISULFATE [Concomitant]
  4. ATENOLOL [Concomitant]
  5. SIMVASTATIN [Concomitant]
  6. DILTIAZEM [Concomitant]
  7. EZETIMIBE [Concomitant]

REACTIONS (1)
  - CORONARY ARTERY THROMBOSIS [None]
